FAERS Safety Report 25461158 (Version 5)
Quarter: 2025Q3

REPORT INFORMATION
  Report Type: Report from Study
  Country: US (occurrence: US)
  Receive Date: 20250620
  Receipt Date: 20250811
  Transmission Date: 20251020
  Serious: No
  Sender: MALLINCKRODT
  Company Number: US-MALLINCKRODT-MNK202503260

PATIENT
  Age: 56 Year
  Sex: Female

DRUGS (3)
  1. CORTICOTROPIN [Suspect]
     Active Substance: CORTICOTROPIN
     Indication: Punctate keratitis
     Route: 058
  2. HUMIRA [Concomitant]
     Active Substance: ADALIMUMAB
  3. EPINEPHRINE [Concomitant]
     Active Substance: EPINEPHRINE

REACTIONS (8)
  - Fear of injection [Not Recovered/Not Resolved]
  - Arthritis [Unknown]
  - Visual impairment [Not Recovered/Not Resolved]
  - Stress [Unknown]
  - Lung disorder [Unknown]
  - Feeling abnormal [Unknown]
  - Fatigue [Unknown]
  - Lethargy [Unknown]

NARRATIVE: CASE EVENT DATE: 20250805
